FAERS Safety Report 17192679 (Version 1)
Quarter: 2019Q4

REPORT INFORMATION
  Report Type: Spontaneous
  Country: US (occurrence: US)
  Receive Date: 20191223
  Receipt Date: 20191223
  Transmission Date: 20200122
  Serious: No
  Sender: FDA-Public Use
  Company Number: US-SA-2019SA349763

PATIENT
  Age: 51 Year
  Sex: Female

DRUGS (3)
  1. BENADRYL [Suspect]
     Active Substance: DIPHENHYDRAMINE HYDROCHLORIDE
  2. DEXAMETHASONE. [Suspect]
     Active Substance: DEXAMETHASONE
  3. FERRLECIT [Suspect]
     Active Substance: SODIUM FERRIC GLUCONATE COMPLEX
     Dosage: UNK
     Dates: start: 20191205

REACTIONS (11)
  - Paraesthesia [Unknown]
  - Dyspnoea [Unknown]
  - Nausea [Unknown]
  - Unevaluable event [Unknown]
  - Feeling abnormal [Unknown]
  - Chest discomfort [Unknown]
  - Dizziness [Unknown]
  - Urticaria [Unknown]
  - Burning sensation [Unknown]
  - Pruritus [Unknown]
  - Flank pain [Unknown]

NARRATIVE: CASE EVENT DATE: 201912
